FAERS Safety Report 13382122 (Version 1)
Quarter: 2017Q1

REPORT INFORMATION
  Report Type: Report from Study
  Country: BE (occurrence: BE)
  Receive Date: 20170329
  Receipt Date: 20170329
  Transmission Date: 20170429
  Serious: Yes (Hospitalization, Other)
  Sender: FDA-Public Use
  Company Number: PHHY2017BE045002

PATIENT
  Age: 53 Year
  Sex: Female
  Weight: 60 kg

DRUGS (11)
  1. TEGRETOL [Suspect]
     Active Substance: CARBAMAZEPINE
     Dosage: 600 MG, QD
     Route: 048
     Dates: start: 201510
  2. FENYTOIN [Suspect]
     Active Substance: PHENYTOIN
     Dosage: 250 MG, QD
     Route: 048
     Dates: start: 20160808, end: 20161012
  3. VALPROAT [Concomitant]
     Active Substance: VALPROATE SODIUM
     Indication: PRODUCT USED FOR UNKNOWN INDICATION
     Route: 065
  4. FENYTOIN [Suspect]
     Active Substance: PHENYTOIN
     Dosage: 200 MG, QD
     Route: 048
     Dates: start: 201404, end: 201507
  5. FENYTOIN [Suspect]
     Active Substance: PHENYTOIN
     Dosage: 300 MG, QD
     Route: 048
     Dates: start: 201507, end: 20160804
  6. TEGRETOL [Suspect]
     Active Substance: CARBAMAZEPINE
     Indication: EPILEPSY
     Dosage: 400 MG, QD
     Route: 048
     Dates: start: 201507, end: 201510
  7. FENYTOIN [Suspect]
     Active Substance: PHENYTOIN
     Indication: EPILEPSY
     Dosage: 300 MG, QD
     Route: 048
     Dates: start: 201401, end: 201404
  8. FENYTOIN [Suspect]
     Active Substance: PHENYTOIN
     Dosage: 225 MG, QD
     Route: 048
     Dates: start: 20161013
  9. FYCOMPA [Suspect]
     Active Substance: PERAMPANEL
     Dosage: 4 MG, QD
     Route: 048
     Dates: start: 20170129
  10. DEPAKINE CHRONO [Concomitant]
     Active Substance: VALPROATE SODIUM
     Indication: PRODUCT USED FOR UNKNOWN INDICATION
     Route: 065
  11. FYCOMPA [Suspect]
     Active Substance: PERAMPANEL
     Indication: EPILEPSY
     Dosage: 2 MG, QD
     Route: 048
     Dates: start: 20160603, end: 20170128

REACTIONS (4)
  - Hyponatraemia [Recovered/Resolved]
  - Malaise [Recovered/Resolved]
  - Toxicity to various agents [Recovered/Resolved]
  - Status epilepticus [Recovered/Resolved]

NARRATIVE: CASE EVENT DATE: 20160624
